FAERS Safety Report 5389364-2 (Version None)
Quarter: 2007Q3

REPORT INFORMATION
  Report Type: 
  Country: None (occurrence: None)
  Receive Date: 20070717
  Receipt Date: 20070712
  Transmission Date: 20080115
  Serious: Yes (Life-Threatening)
  Sender: FDA-Public Use
  Company Number: JP-BAYER-200710484BYL

PATIENT

DRUGS (1)
  1. CIPROFLOXACIN [Suspect]
     Dosage: UNIT DOSE: 200 MG
     Route: 048

REACTIONS (1)
  - PULMONARY FUNCTION TEST DECREASED [None]
